FAERS Safety Report 17351011 (Version 7)
Quarter: 2021Q1

REPORT INFORMATION
  Report Type: Report from Study
  Country: JP (occurrence: JP)
  Receive Date: 20200130
  Receipt Date: 20210217
  Transmission Date: 20210419
  Serious: Yes (Hospitalization)
  Sender: FDA-Public Use
  Company Number: NVSC2020JP018338

PATIENT
  Age: 47 Year
  Sex: Female
  Weight: 64.2 kg

DRUGS (40)
  1. ILARIS [Suspect]
     Active Substance: CANAKINUMAB
     Indication: TRIPLE NEGATIVE BREAST CANCER
     Dosage: 600 MG, Q2MO
     Route: 058
     Dates: start: 20191213, end: 20191213
  2. SODIUM CHLORIDE. [Concomitant]
     Active Substance: SODIUM CHLORIDE
     Dosage: UNK
     Route: 065
     Dates: start: 20200123, end: 20200206
  3. CALCIUM GLUCONATE. [Concomitant]
     Active Substance: CALCIUM GLUCONATE
     Indication: PROPHYLAXIS
     Dosage: UNK
     Route: 065
     Dates: start: 20200111, end: 20200113
  4. CALCIUM GLUCONATE. [Concomitant]
     Active Substance: CALCIUM GLUCONATE
     Dosage: UNK
     Route: 065
     Dates: start: 20200114, end: 20200114
  5. DENOTAS [Concomitant]
     Active Substance: CALCIUM CARBONATE\CHOLECALCIFEROL\MAGNESIUM CARBONATE
     Indication: METASTASIS
     Dosage: UNK
     Route: 065
     Dates: start: 20191112
  6. ALFACALCIDOL [Concomitant]
     Active Substance: ALFACALCIDOL
     Indication: PROPHYLAXIS
  7. PREDNISOLONE. [Concomitant]
     Active Substance: PREDNISOLONE
     Indication: HEPATIC FUNCTION ABNORMAL
     Dosage: UNK
     Route: 065
     Dates: start: 20200122, end: 20200128
  8. MOXIFLOXACIN HYDROCHLORIDE. [Concomitant]
     Active Substance: MOXIFLOXACIN HYDROCHLORIDE
     Indication: PNEUMONIA BACTERIAL
     Dosage: UNK
     Route: 065
     Dates: start: 20200120, end: 20200131
  9. MORPHINE HYDROCHLORIDE [Concomitant]
     Active Substance: MORPHINE HYDROCHLORIDE
     Indication: TUMOUR PAIN
     Dosage: UNK
     Route: 065
     Dates: start: 20191213
  10. SODIUM CHLORIDE. [Concomitant]
     Active Substance: SODIUM CHLORIDE
     Indication: PROPHYLAXIS
     Dosage: UNK
     Route: 065
     Dates: start: 20200107, end: 20200114
  11. CALCIUM [Concomitant]
     Active Substance: CALCIUM
     Indication: HYDRONEPHROSIS
     Dosage: UNK
     Route: 065
     Dates: start: 20200115
  12. ALFACALCIDOL [Concomitant]
     Active Substance: ALFACALCIDOL
     Indication: HYDRONEPHROSIS
     Dosage: UNK
     Route: 065
     Dates: start: 20200118
  13. DIPHENHYDRAMINE. [Concomitant]
     Active Substance: DIPHENHYDRAMINE
     Indication: PRURITUS
     Dosage: UNK
     Route: 065
     Dates: start: 20191101
  14. LAG525 [Suspect]
     Active Substance: IERAMILIMAB
     Indication: TRIPLE NEGATIVE BREAST CANCER
     Dosage: 600 MG, Q4W
     Route: 042
     Dates: start: 20191213, end: 20191213
  15. CALCIUM GLUCONATE. [Concomitant]
     Active Substance: CALCIUM GLUCONATE
     Dosage: UNK
     Route: 065
     Dates: start: 20200122, end: 20200122
  16. LANSOPRAZOLE. [Concomitant]
     Active Substance: LANSOPRAZOLE
     Indication: PROPHYLAXIS
     Dosage: UNK
     Route: 065
     Dates: start: 20200112
  17. SOLDEM 1 [Concomitant]
     Active Substance: DEXTROSE\SODIUM CHLORIDE\SODIUM LACTATE
     Dosage: UNK
     Route: 065
     Dates: start: 20200122, end: 20200124
  18. INDOMETACIN [Concomitant]
     Active Substance: INDOMETHACIN
     Indication: TUMOUR PAIN
     Dosage: UNK
     Route: 065
     Dates: start: 20200113
  19. BROMHEXINE HYDROCHLORIDE [Concomitant]
     Active Substance: BROMHEXINE HYDROCHLORIDE
     Indication: PNEUMONIA BACTERIAL
     Dosage: UNK
     Route: 065
     Dates: start: 20200109, end: 20200120
  20. ACETAMINOPHEN. [Concomitant]
     Active Substance: ACETAMINOPHEN
     Dosage: UNK
     Route: 065
     Dates: start: 20200118, end: 20200121
  21. CALCIUM GLUCONATE. [Concomitant]
     Active Substance: CALCIUM GLUCONATE
     Dosage: UNK
     Route: 065
     Dates: start: 20200124, end: 20200124
  22. ACETAMINOPHEN. [Concomitant]
     Active Substance: ACETAMINOPHEN
     Indication: TUMOUR PAIN
     Dosage: UNK
     Route: 065
     Dates: start: 20200118, end: 20200118
  23. MAGNESIUM OXIDE. [Concomitant]
     Active Substance: MAGNESIUM OXIDE
     Indication: CONSTIPATION
     Dosage: UNK
     Route: 065
     Dates: start: 20190409
  24. PDR001 [Suspect]
     Active Substance: SPARTALIZUMAB
     Indication: TRIPLE NEGATIVE BREAST CANCER
     Dosage: 400 MG, Q4W
     Route: 042
     Dates: start: 20191213, end: 20191213
  25. TIPEPIDINE HIBENZATE [Concomitant]
     Active Substance: TIPEPIDINE HIBENZATE
     Indication: PNEUMONIA BACTERIAL
     Dosage: UNK
     Route: 065
     Dates: start: 20200109, end: 20200201
  26. NALDEMEDINE TOSILATE [Concomitant]
     Active Substance: NALDEMEDINE TOSYLATE
     Indication: CONSTIPATION
     Dosage: UNK
     Route: 065
     Dates: start: 20190507
  27. CALCIUM GLUCONATE. [Concomitant]
     Active Substance: CALCIUM GLUCONATE
     Indication: HYDRONEPHROSIS
     Dosage: UNK
     Route: 065
     Dates: start: 20200110, end: 20200110
  28. AZITHROMYCIN ANHYDROUS. [Concomitant]
     Active Substance: AZITHROMYCIN ANHYDROUS
     Indication: PNEUMONIA BACTERIAL
     Dosage: UNK
     Route: 065
     Dates: start: 20200107, end: 20200109
  29. L?CARBOCYSTEINE [Concomitant]
     Active Substance: CARBOCYSTEINE
     Indication: PNEUMONIA BACTERIAL
     Dosage: UNK
     Route: 065
     Dates: start: 20200109, end: 20200201
  30. SOLDEM 1 [Concomitant]
     Active Substance: DEXTROSE\SODIUM CHLORIDE\SODIUM LACTATE
     Indication: PROPHYLAXIS
     Dosage: UNK
     Route: 065
     Dates: start: 20200115, end: 20200120
  31. EDOXABAN TOSILATE MONOHYDRATE [Concomitant]
     Active Substance: EDOXABAN TOSYLATE
     Indication: DEEP VEIN THROMBOSIS
     Dosage: UNK
     Route: 065
     Dates: start: 20200115, end: 20200118
  32. EDOXABAN TOSILATE MONOHYDRATE [Concomitant]
     Active Substance: EDOXABAN TOSYLATE
     Dosage: UNK
     Route: 065
     Dates: start: 20200120, end: 20200128
  33. SCOPOLAMINE BUTYLBROMIDE [Concomitant]
     Active Substance: SCOPOLAMINE
     Indication: ABDOMINAL PAIN
     Dosage: UNK
     Route: 065
     Dates: start: 20200117
  34. MORPHINE SULFATE. [Concomitant]
     Active Substance: MORPHINE SULFATE
     Indication: TUMOUR PAIN
     Dosage: UNK
     Route: 065
     Dates: start: 20190409
  35. SOLDEM 1 [Concomitant]
     Active Substance: DEXTROSE\SODIUM CHLORIDE\SODIUM LACTATE
     Dosage: UNK
     Route: 065
     Dates: start: 20200125, end: 20200127
  36. ACETAMINOPHEN. [Concomitant]
     Active Substance: ACETAMINOPHEN
     Indication: HYDRONEPHROSIS
     Dosage: UNK
     Route: 065
     Dates: start: 20191221, end: 20200117
  37. ACETAMINOPHEN. [Concomitant]
     Active Substance: ACETAMINOPHEN
     Dosage: UNK
     Route: 065
     Dates: start: 20200122
  38. LOXOPROFEN SODIUM HYDRATE [Concomitant]
     Active Substance: LOXOPROFEN SODIUM DIHYDRATE
     Indication: TUMOUR PAIN
     Dosage: UNK
     Route: 065
     Dates: start: 20191220
  39. HEPARINOID [Concomitant]
     Active Substance: CHONDROITIN SULFATE (BOVINE)
     Indication: PRURITUS
     Dosage: UNK
     Route: 065
     Dates: start: 20190416
  40. CEFTRIAXONE SODIUM. [Concomitant]
     Active Substance: CEFTRIAXONE SODIUM
     Indication: PNEUMONIA BACTERIAL
     Dosage: UNK
     Route: 065
     Dates: start: 20200107, end: 20200119

REACTIONS (1)
  - Rash maculo-papular [Recovering/Resolving]

NARRATIVE: CASE EVENT DATE: 20200122
